FAERS Safety Report 24161721 (Version 1)
Quarter: 2024Q3

REPORT INFORMATION
  Report Type: Spontaneous
  Country: US (occurrence: US)
  Receive Date: 20240801
  Receipt Date: 20240801
  Transmission Date: 20241016
  Serious: No
  Sender: SANOFI AVENTIS
  Company Number: US-SA-2024SA221950

PATIENT
  Age: 67 Year
  Sex: Male
  Weight: 96.6 kg

DRUGS (2)
  1. REZUROCK [Suspect]
     Active Substance: BELUMOSUDIL
     Dosage: UNK
  2. JAKAFI [Concomitant]
     Active Substance: RUXOLITINIB
     Indication: Myelodysplastic syndrome
     Dosage: 10 MG
     Route: 048

REACTIONS (1)
  - Drug ineffective [Unknown]
